FAERS Safety Report 5165020-0 (Version None)
Quarter: 2006Q4

REPORT INFORMATION
  Report Type: 
  Country: None (occurrence: None)
  Receive Date: 20061124
  Receipt Date: 20061116
  Transmission Date: 20070319
  Serious: Yes (Other)
  Sender: FDA-Public Use
  Company Number: 2006130721

PATIENT
  Age: 45 Year
  Sex: Female

DRUGS (1)
  1. SERTRALINE [Suspect]
     Indication: DEPRESSION
     Dosage: 150 MG (150 MG, 1 IN 1 D) ORAL
     Route: 048
     Dates: start: 20060522

REACTIONS (5)
  - AMNESIA [None]
  - FALL [None]
  - JOINT INJURY [None]
  - LOSS OF CONSCIOUSNESS [None]
  - URINARY INCONTINENCE [None]
